FAERS Safety Report 23487681 (Version 2)
Quarter: 2024Q4

REPORT INFORMATION
  Report Type: Spontaneous
  Country: US (occurrence: US)
  Receive Date: 20240206
  Receipt Date: 20241030
  Transmission Date: 20250115
  Serious: No
  Sender: TEIKOKU
  Company Number: US-Teikoku Pharma USA-TPU2023-00288

PATIENT
  Sex: Female

DRUGS (1)
  1. LIDOCAINE PATCH [Suspect]
     Active Substance: LIDOCAINE
     Indication: Sciatica

REACTIONS (1)
  - Product availability issue [Not Recovered/Not Resolved]
